FAERS Safety Report 6438964-7 (Version None)
Quarter: 2009Q4

REPORT INFORMATION
  Report Type: 
  Country: None (occurrence: None)
  Receive Date: 20091111
  Receipt Date: 20091111
  Transmission Date: 20100525
  Serious: Yes (Hospitalization)
  Sender: FDA-Public Use
  Company Number: None

PATIENT
  Age: 59 Year
  Sex: Male
  Weight: 97.5 kg

DRUGS (2)
  1. RITUXIMAB [Suspect]
     Indication: CHRONIC LYMPHOCYTIC LEUKAEMIA
     Dosage: 860 MG
     Dates: start: 20090406, end: 20090408
  2. ETOPOSIDE [Suspect]
     Indication: CHRONIC LYMPHOCYTIC LEUKAEMIA
     Dosage: 230 MG
     Dates: start: 20090402, end: 20090405

REACTIONS (3)
  - LEUKOPENIA [None]
  - NEUTROPENIA [None]
  - THROMBOCYTOPENIA [None]
